FAERS Safety Report 8929752 (Version 2)
Quarter: 2012Q4

REPORT INFORMATION
  Report Type: Report from Study
  Country: CA (occurrence: CA)
  Receive Date: 20121128
  Receipt Date: 20121217
  Transmission Date: 20130627
  Serious: Yes (Hospitalization)
  Sender: FDA-Public Use
  Company Number: CA-ABBOTT-12P-028-1012831-00

PATIENT
  Sex: Female
  Weight: 90.8 kg

DRUGS (5)
  1. HUMIRA [Suspect]
     Indication: CROHN^S DISEASE
     Route: 058
     Dates: start: 20080924, end: 2012
  2. METHOTREXATE [Concomitant]
     Indication: CROHN^S DISEASE
  3. LYRICA [Concomitant]
     Indication: IRRITABLE BOWEL SYNDROME
  4. UNKNOWN MIGRAINE MEDICATION [Concomitant]
     Indication: MIGRAINE
  5. EPIVAL [Concomitant]
     Indication: EPILEPSY

REACTIONS (5)
  - Hypoaesthesia [Not Recovered/Not Resolved]
  - Mobility decreased [Not Recovered/Not Resolved]
  - Abdominal pain [Not Recovered/Not Resolved]
  - Abdominal pain upper [Not Recovered/Not Resolved]
  - Nausea [Not Recovered/Not Resolved]
